FAERS Safety Report 9653217 (Version 1)
Quarter: 2013Q4

REPORT INFORMATION
  Report Type: Spontaneous
  Country: TR (occurrence: TR)
  Receive Date: 20131029
  Receipt Date: 20131029
  Transmission Date: 20140711
  Serious: Yes (Other)
  Sender: FDA-Public Use
  Company Number: TR-PFIZER INC-2013307382

PATIENT
  Sex: Female

DRUGS (7)
  1. NEURONTIN [Suspect]
     Indication: TRIGEMINAL NEURALGIA
     Dosage: 600 MG, UNK
     Dates: start: 2007
  2. NEURONTIN [Suspect]
     Dosage: 800 MG, UNK
  3. NEURONTIN [Suspect]
     Dosage: 800 MG, 3X/DAY
  4. TEGRETOL [Concomitant]
     Dosage: 200 MG, UNK
  5. TEGRETOL [Concomitant]
     Dosage: 400 MG, UNK
  6. TEGRETOL [Concomitant]
     Dosage: 400 MG, 4X/DAY
  7. PROZAC [Concomitant]
     Dosage: 20 MG, 1X/DAY

REACTIONS (7)
  - Off label use [Unknown]
  - Shock [Unknown]
  - Vertigo [Unknown]
  - Feeling drunk [Unknown]
  - Tremor [Unknown]
  - Memory impairment [Unknown]
  - Drug ineffective for unapproved indication [Unknown]
